FAERS Safety Report 7395092-4 (Version None)
Quarter: 2011Q2

REPORT INFORMATION
  Report Type: 
  Country: None (occurrence: None)
  Receive Date: 20110405
  Receipt Date: 20110331
  Transmission Date: 20111010
  Serious: Yes (Hospitalization, Other)
  Sender: FDA-Public Use
  Company Number: US-PFIZER INC-2006124566

PATIENT
  Sex: Female

DRUGS (8)
  1. SYNTHROID [Concomitant]
     Indication: HYPOTHYROIDISM
     Dosage: UNK MG, UNK
  2. FOSAMAX [Concomitant]
     Indication: OSTEOPENIA
     Dosage: 35 MG, UNK
  3. ASPIRIN [Concomitant]
     Dosage: UNK
  4. METOPROLOL [Concomitant]
     Indication: HYPERTENSION
     Dosage: 50 MG, UNK
  5. LIPITOR [Suspect]
     Dosage: 40 MG, 1X/DAY
     Dates: start: 20040801, end: 20041101
  6. LIPITOR [Suspect]
     Dosage: UNK
     Dates: start: 20090101
  7. HYZAAR [Concomitant]
     Dosage: UNK
  8. ZOCOR [Concomitant]
     Dosage: 20 MG, UNK

REACTIONS (8)
  - FATIGUE [None]
  - NEUROPATHY PERIPHERAL [None]
  - COGNITIVE DISORDER [None]
  - DEPRESSION [None]
  - BALANCE DISORDER [None]
  - AMNESIA [None]
  - DISORIENTATION [None]
  - IRRITABILITY [None]
